FAERS Safety Report 4945309-8 (Version None)
Quarter: 2006Q1

REPORT INFORMATION
  Report Type: 
  Country: None (occurrence: None)
  Receive Date: 20060315
  Receipt Date: 20060315
  Transmission Date: 20060701
  Serious: No
  Sender: FDA-Public Use
  Company Number: None

PATIENT
  Age: 37 Year
  Sex: Male

DRUGS (1)
  1. VIGAMOX [Suspect]
     Indication: KERATITIS
     Dosage: 1 GTT OS TID/QID X 1 1/2 WEEKS
     Route: 047
     Dates: start: 20050901, end: 20050912

REACTIONS (3)
  - PHARMACEUTICAL PRODUCT COMPLAINT [None]
  - POOR QUALITY DRUG ADMINISTERED [None]
  - THERAPY NON-RESPONDER [None]
